FAERS Safety Report 24184331 (Version 1)
Quarter: 2024Q3

REPORT INFORMATION
  Report Type: Spontaneous
  Country: PL (occurrence: PL)
  Receive Date: 20240807
  Receipt Date: 20240807
  Transmission Date: 20241016
  Serious: Yes (Other)
  Sender: FRESENIUS KABI
  Company Number: PL-AMGEN-POLSP2024146675

PATIENT
  Age: 72 Year
  Sex: Male

DRUGS (4)
  1. IRINOTECAN [Suspect]
     Active Substance: IRINOTECAN
     Indication: Colon cancer
     Dosage: UNK
     Route: 065
     Dates: start: 20210423
  2. LEUCOVORIN [Suspect]
     Active Substance: LEUCOVORIN\LEUCOVORIN CALCIUM
     Indication: Colon cancer
     Dosage: UNK
     Route: 065
     Dates: start: 20210423
  3. VECTIBIX [Suspect]
     Active Substance: PANITUMUMAB
     Indication: Colon cancer
     Dosage: UNK
     Route: 065
     Dates: start: 20210423
  4. FLUOROURACIL [Suspect]
     Active Substance: FLUOROURACIL
     Indication: Colon cancer
     Dosage: UNK
     Route: 065
     Dates: start: 20210423

REACTIONS (5)
  - Cancer surgery [Unknown]
  - Cholecystectomy [Unknown]
  - Skin disorder [Not Recovered/Not Resolved]
  - Eye disorder [Not Recovered/Not Resolved]
  - Therapy partial responder [Unknown]

NARRATIVE: CASE EVENT DATE: 20211117
